FAERS Safety Report 10952035 (Version 1)
Quarter: 2015Q1

REPORT INFORMATION
  Report Type: Spontaneous
  Country: US (occurrence: None)
  Receive Date: 20150324
  Receipt Date: 20150324
  Transmission Date: 20150721
  Serious: Yes (Life-Threatening, Disabling, Other)
  Sender: FDA-Public Use
  Company Number: None

PATIENT
  Age: 63 Year
  Sex: Female
  Weight: 58.97 kg

DRUGS (32)
  1. NEXIUM [Concomitant]
     Active Substance: ESOMEPRAZOLE MAGNESIUM
  2. FOLIC ACID. [Concomitant]
     Active Substance: FOLIC ACID
  3. REFRESH PLUS [Concomitant]
     Active Substance: CARBOXYMETHYLCELLULOSE SODIUM
  4. EXELON [Concomitant]
     Active Substance: RIVASTIGMINE TARTRATE
  5. CLONAZEPAM. [Concomitant]
     Active Substance: CLONAZEPAM
  6. LEVOTHYROXINE [Concomitant]
     Active Substance: LEVOTHYROXINE
  7. CONTOUR NEXT BLOOD GLUCOSE METER [Concomitant]
  8. LACTOBACILLUS RHAMNOSUS [Concomitant]
     Active Substance: LACTOBACILLUS RHAMNOSUS
  9. SUCRALFATE. [Concomitant]
     Active Substance: SUCRALFATE
  10. GABAPENTIN. [Concomitant]
     Active Substance: GABAPENTIN
  11. METFORMIN [Concomitant]
     Active Substance: METFORMIN HYDROCHLORIDE
  12. ASPIRIN. [Concomitant]
     Active Substance: ASPIRIN
  13. FENOFIBRATE. [Concomitant]
     Active Substance: FENOFIBRATE
  14. CYCLOBENZAPRINE [Concomitant]
     Active Substance: CYCLOBENZAPRINE
  15. HYZAAR [Concomitant]
     Active Substance: HYDROCHLOROTHIAZIDE\LOSARTAN POTASSIUM
  16. LORATADINE. [Concomitant]
     Active Substance: LORATADINE
  17. CONTOUR LANCETS + BLOOD SUGAR STRIPS [Concomitant]
  18. FLUOXETINE [Concomitant]
     Active Substance: FLUOXETINE\FLUOXETINE HYDROCHLORIDE
  19. PHENERGAN [Concomitant]
     Active Substance: PROMETHAZINE HYDROCHLORIDE
  20. FIORINAL [Concomitant]
     Active Substance: ASPIRIN\BUTALBITAL\CAFFEINE
  21. LUTEIN [Concomitant]
     Active Substance: LUTEIN
  22. FLUTICASONE [Concomitant]
     Active Substance: FLUTICASONE\FLUTICASONE PROPIONATE
  23. ANTIVERT [Concomitant]
     Active Substance: MECLIZINE HYDROCHLORIDE
  24. THERAGRAN MULTIVITAMIN [Concomitant]
  25. VITAMIN D2 [Concomitant]
     Active Substance: ERGOCALCIFEROL
  26. ROPINIROLE. [Concomitant]
     Active Substance: ROPINIROLE
  27. ZOCOR [Concomitant]
     Active Substance: SIMVASTATIN
  28. MINERALS [Concomitant]
     Active Substance: MINERALS
  29. PROLIA [Suspect]
     Active Substance: DENOSUMAB
     Indication: OSTEOPOROSIS
  30. AZELASTINE [Concomitant]
     Active Substance: AZELASTINE
  31. POTASSIUM [Concomitant]
     Active Substance: POTASSIUM
  32. MULTIVITAMIN [Concomitant]
     Active Substance: VITAMINS

REACTIONS (4)
  - Cardiac arrest [None]
  - Tooth fracture [None]
  - Facial pain [None]
  - Tooth loss [None]

NARRATIVE: CASE EVENT DATE: 20120416
